APPROVED DRUG PRODUCT: ACYCLOVIR
Active Ingredient: ACYCLOVIR
Strength: 5%
Dosage Form/Route: OINTMENT;TOPICAL
Application: A212495 | Product #001 | TE Code: AB
Applicant: CHARTWELL RX SCIENCES LLC
Approved: Apr 7, 2020 | RLD: No | RS: No | Type: RX